FAERS Safety Report 9967183 (Version 1)
Quarter: 2014Q1

REPORT INFORMATION
  Report Type: Report from Study
  Country: PR (occurrence: PR)
  Receive Date: 20140305
  Receipt Date: 20140305
  Transmission Date: 20141002
  Serious: No
  Sender: FDA-Public Use
  Company Number: PR-ABBVIE-13P-131-1139877-00

PATIENT
  Sex: Female
  Weight: 64.47 kg

DRUGS (8)
  1. HUMIRA [Suspect]
     Indication: RHEUMATOID ARTHRITIS
     Route: 058
     Dates: end: 201307
  2. SYNTHROID [Concomitant]
     Indication: HYPOTHYROIDISM
     Route: 048
  3. FOLIC ACID [Concomitant]
     Indication: RHEUMATOID ARTHRITIS
     Route: 048
  4. PLAQUENIL [Concomitant]
     Indication: RHEUMATOID ARTHRITIS
     Route: 048
  5. PAXIL [Concomitant]
     Indication: DEPRESSION
     Dosage: ONE AT NIGHT TIME
  6. PREVACID [Concomitant]
     Indication: GASTRITIS
     Dosage: ONE AT NIGHT TIME
     Route: 048
  7. ADAVAIR [Concomitant]
     Indication: ASTHMA
     Dosage: 250/50MCG
     Route: 048
  8. ALLEGRA [Concomitant]
     Indication: ASTHMA
     Dosage: ONE AT NIGHT TIME
     Route: 048

REACTIONS (2)
  - Pain [Not Recovered/Not Resolved]
  - Depression [Not Recovered/Not Resolved]
